FAERS Safety Report 6646539-X (Version None)
Quarter: 2010Q1

REPORT INFORMATION
  Report Type: 
  Country: None (occurrence: None)
  Receive Date: 20100323
  Receipt Date: 20100316
  Transmission Date: 20100710
  Serious: Yes (Other)
  Sender: FDA-Public Use
  Company Number: US-ABBOTT-10P-163-0629919-00

PATIENT
  Age: 27 Year
  Sex: Male

DRUGS (4)
  1. DEPAKENE [Suspect]
     Indication: CONVULSION
     Dates: start: 20050101
  2. CLARITIN REDITABS [Suspect]
     Indication: DRUG USE FOR UNKNOWN INDICATION
     Dates: start: 20100213
  3. TEGRETOL [Suspect]
     Indication: CONVULSION
     Dates: start: 20050101
  4. LEVOXYL [Concomitant]
     Indication: DRUG USE FOR UNKNOWN INDICATION

REACTIONS (5)
  - BALANCE DISORDER [None]
  - CRYING [None]
  - DEPRESSION [None]
  - DYSSTASIA [None]
  - PETIT MAL EPILEPSY [None]
